FAERS Safety Report 9801730 (Version 1)
Quarter: 2014Q1

REPORT INFORMATION
  Report Type: Spontaneous
  Country: KR (occurrence: KR)
  Receive Date: 20140107
  Receipt Date: 20140107
  Transmission Date: 20141002
  Serious: Yes (Other)
  Sender: FDA-Public Use
  Company Number: KR-PFIZER INC-2014003513

PATIENT
  Sex: Female

DRUGS (3)
  1. LIPITOR [Suspect]
     Dosage: 10 MG, DAILY
     Route: 048
     Dates: start: 2011, end: 2013
  2. LIPITOR [Suspect]
     Dosage: 10 MG, ALTERNATE DAY (ONCE EVERY 2 DAYS)
     Route: 048
     Dates: start: 2013
  3. OMEGA 3 [Concomitant]
     Dosage: UNK
     Route: 048

REACTIONS (1)
  - Haematemesis [Unknown]
